FAERS Safety Report 8359293-0 (Version None)
Quarter: 2012Q2

REPORT INFORMATION
  Report Type: 
  Country: None (occurrence: None)
  Receive Date: 20120515
  Receipt Date: 20120511
  Transmission Date: 20120825
  Serious: No
  Sender: FDA-Public Use
  Company Number: US-BAYER-2012-046858

PATIENT
  Age: 55 Year
  Sex: Male

DRUGS (3)
  1. PRILOSEC [Concomitant]
     Dosage: 20 MG, UNK
  2. NEXAVAR [Suspect]
     Dosage: 200 MG, BID
     Route: 048
     Dates: end: 20120504
  3. ASPIRIN [Concomitant]
     Dosage: 325 UNK, UNK

REACTIONS (1)
  - OEDEMA PERIPHERAL [None]
